FAERS Safety Report 7111573-2 (Version None)
Quarter: 2010Q4

REPORT INFORMATION
  Report Type: 
  Country: None (occurrence: None)
  Receive Date: 20101118
  Receipt Date: 20100624
  Transmission Date: 20110411
  Serious: No
  Sender: FDA-Public Use
  Company Number: US-PFIZER INC-2010079294

PATIENT
  Sex: Male
  Weight: 7.71 kg

DRUGS (7)
  1. ZYVOX [Suspect]
     Indication: PNEUMONIA STREPTOCOCCAL
     Dosage: 4 ML, 3X/DAY
     Route: 048
     Dates: start: 20100525, end: 20100604
  2. BACID [Concomitant]
     Indication: ANTIBIOTIC THERAPY
     Dosage: UNK
  3. PREVACID [Concomitant]
     Indication: GASTROOESOPHAGEAL REFLUX DISEASE
     Dosage: UNK, 2X/DAY
  4. MONTELUKAST SODIUM [Concomitant]
     Indication: HYPERSENSITIVITY
     Dosage: UNK
  5. MONTELUKAST SODIUM [Concomitant]
     Indication: ASTHMA
  6. ZYRTEC [Concomitant]
     Indication: HYPERSENSITIVITY
     Dosage: UNK
  7. QVAR 40 [Concomitant]
     Dosage: 160 UG, 2X/DAY

REACTIONS (2)
  - DIARRHOEA [None]
  - SKIN IRRITATION [None]
